FAERS Safety Report 7780157-5 (Version None)
Quarter: 2011Q3

REPORT INFORMATION
  Report Type: 
  Country: None (occurrence: None)
  Receive Date: 20110922
  Receipt Date: 20110913
  Transmission Date: 20111222
  Serious: Yes (Hospitalization)
  Sender: FDA-Public Use
  Company Number: PL-001971

PATIENT
  Age: 15 Year
  Sex: Male
  Weight: 37 kg

DRUGS (1)
  1. NAGLAZYME [Suspect]
     Indication: MUCOPOLYSACCHARIDOSIS VI
     Dosage: 35 MG 1X/WEEK INTRAVENOUS DRIP
     Route: 041
     Dates: start: 20090901

REACTIONS (1)
  - SPINAL FUSION SURGERY [None]
